FAERS Safety Report 23291144 (Version 3)
Quarter: 2024Q1

REPORT INFORMATION
  Report Type: Report from Study
  Country: JP (occurrence: JP)
  Receive Date: 20231213
  Receipt Date: 20240307
  Transmission Date: 20240409
  Serious: Yes (Hospitalization, Other)
  Sender: FDA-Public Use
  Company Number: JP-ASTELLAS-2023JP005557

PATIENT
  Age: 85 Year
  Sex: Female
  Weight: 60 kg

DRUGS (10)
  1. ENFORTUMAB VEDOTIN [Suspect]
     Active Substance: ENFORTUMAB VEDOTIN
     Indication: Transitional cell carcinoma
     Route: 065
     Dates: start: 20220301, end: 20220315
  2. ENFORTUMAB VEDOTIN [Suspect]
     Active Substance: ENFORTUMAB VEDOTIN
     Route: 065
     Dates: start: 20220606, end: 20220620
  3. AMLODIPINE [Concomitant]
     Active Substance: AMLODIPINE BESYLATE
     Indication: Product used for unknown indication
     Route: 048
     Dates: start: 2013, end: 20220920
  4. AZOSEMIDE [Concomitant]
     Active Substance: AZOSEMIDE
     Indication: Product used for unknown indication
     Route: 048
     Dates: start: 20200831, end: 20220920
  5. FUROSEMIDE [Concomitant]
     Active Substance: FUROSEMIDE
     Indication: Product used for unknown indication
     Route: 048
     Dates: start: 20211220, end: 20220920
  6. PREDONINE [Concomitant]
     Active Substance: PREDNISOLONE
     Indication: Product used for unknown indication
     Route: 048
     Dates: start: 20211220, end: 20220920
  7. LINAGLIPTIN [Concomitant]
     Active Substance: LINAGLIPTIN
     Indication: Product used for unknown indication
     Route: 048
     Dates: start: 20220328, end: 20220920
  8. ROSUVASTATIN [Concomitant]
     Active Substance: ROSUVASTATIN
     Indication: Product used for unknown indication
     Route: 048
     Dates: end: 20220920
  9. VONOPRAZAN FUMARATE [Concomitant]
     Active Substance: VONOPRAZAN FUMARATE
     Indication: Product used for unknown indication
     Route: 048
     Dates: end: 20220920
  10. ALFACALCIDOL [Concomitant]
     Active Substance: ALFACALCIDOL
     Indication: Product used for unknown indication
     Dosage: 0.25 ?G, ONCE DAILY
     Route: 048
     Dates: end: 20220920

REACTIONS (1)
  - Chronic kidney disease [Recovered/Resolved]

NARRATIVE: CASE EVENT DATE: 20220328
